FAERS Safety Report 4969339-5 (Version None)
Quarter: 2006Q2

REPORT INFORMATION
  Report Type: 
  Country: None (occurrence: None)
  Receive Date: 20060405
  Receipt Date: 20060324
  Transmission Date: 20061013
  Serious: Yes (Other)
  Sender: FDA-Public Use
  Company Number: 2006-140204-NL

PATIENT
  Age: 29 Year
  Sex: Female
  Weight: 86.2 kg

DRUGS (1)
  1. NUVARING [Suspect]
     Indication: CONTRACEPTION
     Dosage: VAGINAL, 3 WEEKS IN, 1 WEEK OUT
     Route: 067
     Dates: start: 20040101

REACTIONS (5)
  - AMENORRHOEA [None]
  - DYSPLASIA [None]
  - HYPOMENORRHOEA [None]
  - SMEAR CERVIX ABNORMAL [None]
  - TREATMENT NONCOMPLIANCE [None]
